FAERS Safety Report 17082781 (Version 2)
Quarter: 2019Q4

REPORT INFORMATION
  Report Type: Spontaneous
  Country: CH (occurrence: CH)
  Receive Date: 20191127
  Receipt Date: 20191202
  Transmission Date: 20200122
  Serious: Yes (Hospitalization, Other)
  Sender: FDA-Public Use
  Company Number: CH-MYLANLABS-2019M1116083

PATIENT
  Age: 54 Year
  Sex: Male
  Weight: 118 kg

DRUGS (5)
  1. ZESTRIL [Suspect]
     Active Substance: LISINOPRIL
     Dosage: DOSE WAS INCREASED
     Dates: start: 20190823, end: 20190912
  2. ZESTRIL [Suspect]
     Active Substance: LISINOPRIL
     Indication: CARDIAC FAILURE
     Dosage: 10 MILLIGRAM, BID
     Route: 048
  3. TOREM [Suspect]
     Active Substance: TORSEMIDE
     Indication: CARDIAC FAILURE
     Dosage: 10 MILLIGRAM, QD
     Route: 048
  4. PONSTAN [Suspect]
     Active Substance: MEFENAMIC ACID
     Indication: BACK PAIN
     Dosage: 500 MILLIGRAM, PRN
     Route: 048
     Dates: start: 20191027
  5. XENALON [Suspect]
     Active Substance: SPIRONOLACTONE
     Indication: CARDIAC FAILURE
     Dosage: 25 MILLIGRAM, QD
     Route: 048

REACTIONS (1)
  - Acute kidney injury [Recovering/Resolving]

NARRATIVE: CASE EVENT DATE: 20191030
